FAERS Safety Report 8011292-4 (Version None)
Quarter: 2011Q4

REPORT INFORMATION
  Report Type: 
  Country: None (occurrence: None)
  Receive Date: 20111227
  Receipt Date: 20111227
  Transmission Date: 20120403
  Serious: Yes (Hospitalization)
  Sender: FDA-Public Use
  Company Number: None

PATIENT
  Sex: Male
  Weight: 59 kg

DRUGS (1)
  1. GLYBURIDE [Suspect]
     Dosage: 5MG
     Route: 048

REACTIONS (2)
  - BLOOD GLUCOSE DECREASED [None]
  - FALL [None]
